FAERS Safety Report 6734339-1 (Version None)
Quarter: 2010Q2

REPORT INFORMATION
  Report Type: 
  Country: None (occurrence: None)
  Receive Date: 20100520
  Receipt Date: 20100512
  Transmission Date: 20101027
  Serious: Yes (Hospitalization, Other)
  Sender: FDA-Public Use
  Company Number: US-BAXTER-2010BH012400

PATIENT
  Age: 63 Year
  Sex: Male

DRUGS (8)
  1. DIANEAL [Suspect]
     Indication: PERITONEAL DIALYSIS
     Route: 033
     Dates: start: 20100101, end: 20100331
  2. DIANEAL [Suspect]
     Indication: RENAL FAILURE CHRONIC
     Route: 033
     Dates: start: 20100101, end: 20100331
  3. DIANEAL [Suspect]
     Route: 033
     Dates: start: 20100401, end: 20100404
  4. DIANEAL [Suspect]
     Route: 033
     Dates: start: 20100401, end: 20100404
  5. DIANEAL [Suspect]
     Route: 033
     Dates: start: 20100430
  6. DIANEAL [Suspect]
     Route: 033
     Dates: start: 20100430
  7. DIANEAL [Suspect]
     Indication: PERITONEAL DIALYSIS
     Route: 033
     Dates: start: 20100404, end: 20100414
  8. DIANEAL [Suspect]
     Indication: RENAL FAILURE CHRONIC
     Route: 033
     Dates: start: 20100404, end: 20100414

REACTIONS (5)
  - ABDOMINAL MASS [None]
  - BLOOD POTASSIUM INCREASED [None]
  - HERNIA [None]
  - PERITONEAL DISORDER [None]
  - PERITONITIS [None]
